FAERS Safety Report 11419457 (Version 1)
Quarter: 2015Q3

REPORT INFORMATION
  Report Type: Spontaneous
  Country: US (occurrence: None)
  Receive Date: 20150825
  Receipt Date: 20150825
  Transmission Date: 20151125
  Serious: Yes (Death, Hospitalization)
  Sender: FDA-Public Use
  Company Number: None

PATIENT
  Age: 93 Year
  Sex: Female
  Weight: 44.45 kg

DRUGS (1)
  1. SEROQUEL [Suspect]
     Active Substance: QUETIAPINE FUMARATE
     Indication: POST-TRAUMATIC STRESS DISORDER

REACTIONS (17)
  - Dysphagia [None]
  - Aggression [None]
  - Depression [None]
  - Tremor [None]
  - Vision blurred [None]
  - Chills [None]
  - Confusional state [None]
  - Dyspnoea [None]
  - Asthenia [None]
  - Weight decreased [None]
  - Hypophagia [None]
  - Hostility [None]
  - Abdominal pain upper [None]
  - Blood glucose increased [None]
  - Urinary tract infection [None]
  - Pain [None]
  - Agitation [None]
